FAERS Safety Report 23636182 (Version 1)
Quarter: 2024Q1

REPORT INFORMATION
  Report Type: Spontaneous
  Country: US (occurrence: None)
  Receive Date: 20240314
  Receipt Date: 20240314
  Transmission Date: 20240410
  Serious: Yes (Death)
  Sender: FDA-Public Use
  Company Number: None

PATIENT
  Age: 58 Year
  Sex: Male

DRUGS (4)
  1. NORVIR [Suspect]
     Active Substance: RITONAVIR
     Indication: X-ray
     Dosage: FREQUENCY : DAILY;?
     Route: 048
     Dates: start: 20220608, end: 20240201
  2. PREZISTA [Concomitant]
     Dates: start: 20220503, end: 20240201
  3. tivicay 50 [Concomitant]
     Dates: start: 20220503, end: 20240201
  4. ABACAVIR [Concomitant]
     Active Substance: ABACAVIR
     Dates: start: 20220503, end: 20240201

REACTIONS (1)
  - Death [None]

NARRATIVE: CASE EVENT DATE: 20240201
